FAERS Safety Report 5009669-4 (Version None)
Quarter: 2006Q2

REPORT INFORMATION
  Report Type: 
  Country: None (occurrence: None)
  Receive Date: 20060524
  Receipt Date: 20060517
  Transmission Date: 20061013
  Serious: Yes (Other)
  Sender: FDA-Public Use
  Company Number: SE-GLAXOSMITHKLINE-B0424928A

PATIENT
  Sex: Female

DRUGS (3)
  1. LAMICTAL [Suspect]
     Indication: BIPOLAR DISORDER
     Dosage: 100MG PER DAY
     Route: 065
     Dates: start: 20060222
  2. CYMBALTA [Concomitant]
  3. IMOVANE [Concomitant]

REACTIONS (4)
  - EAR DISORDER [None]
  - NASOPHARYNGITIS [None]
  - OCULAR HYPERAEMIA [None]
  - OCULAR ICTERUS [None]
